FAERS Safety Report 22125329 (Version 1)
Quarter: 2023Q1

REPORT INFORMATION
  Report Type: Spontaneous
  Country: ES (occurrence: ES)
  Receive Date: 20230322
  Receipt Date: 20230322
  Transmission Date: 20230418
  Serious: Yes (Life-Threatening, Hospitalization)
  Sender: FDA-Public Use
  Company Number: None

PATIENT

DRUGS (2)
  1. XCOPRI [Interacting]
     Active Substance: CENOBAMATE
     Indication: Epilepsy
     Dosage: 200 MILLIGRAM
     Route: 048
     Dates: start: 20210222
  2. CLOBAZAM [Interacting]
     Active Substance: CLOBAZAM
     Indication: Epilepsy
     Dosage: 10 MG/8 HOURS
     Route: 065
     Dates: start: 20060904

REACTIONS (2)
  - Hyporesponsive to stimuli [Recovered/Resolved]
  - Somnolence [Recovered/Resolved]

NARRATIVE: CASE EVENT DATE: 20210513
